FAERS Safety Report 16566628 (Version 3)
Quarter: 2020Q4

REPORT INFORMATION
  Report Type: Spontaneous
  Country: FR (occurrence: FR)
  Receive Date: 20190712
  Receipt Date: 20201026
  Transmission Date: 20210113
  Serious: Yes (Hospitalization, Other)
  Sender: FDA-Public Use
  Company Number: FR-GILEAD-2019-0417284

PATIENT
  Age: 23 Year
  Sex: Female

DRUGS (1)
  1. EVIPLERA [Suspect]
     Active Substance: EMTRICITABINE\RILPIVIRINE\TENOFOVIR DISOPROXIL FUMARATE
     Indication: PROPHYLAXIS AGAINST HIV INFECTION
     Route: 065

REACTIONS (11)
  - Sinusitis [Recovered/Resolved]
  - Face oedema [Recovered/Resolved]
  - Off label use [Recovered/Resolved]
  - Eye paraesthesia [Recovered/Resolved]
  - Lacrimation increased [Recovered/Resolved]
  - Paraesthesia [Recovered/Resolved]
  - Cluster headache [Recovered/Resolved]
  - Rhinorrhoea [Recovered/Resolved]
  - Headache [Recovered/Resolved]
  - Vomiting [Recovered/Resolved]
  - Eye pain [Recovered/Resolved]
